FAERS Safety Report 5144547-1 (Version None)
Quarter: 2006Q4

REPORT INFORMATION
  Report Type: 
  Country: None (occurrence: None)
  Receive Date: 20061031
  Receipt Date: 20061026
  Transmission Date: 20070319
  Serious: Yes (Hospitalization)
  Sender: FDA-Public Use
  Company Number: E2020-00626-CLI-US

PATIENT
  Age: 80 Year
  Sex: Female
  Weight: 53 kg

DRUGS (6)
  1. DONEPEZIL HCL [Suspect]
     Indication: DEMENTIA ALZHEIMER'S TYPE
     Dosage: 10 MG, 1 IN 1 D, ORAL
     Route: 048
     Dates: start: 20050908
  2. RASAGALINE/PLACEBO [Suspect]
     Indication: DEMENTIA ALZHEIMER'S TYPE
     Dosage: DOUBLE-BLIND, 1 IN 1 D, ORAL
     Route: 048
     Dates: start: 20051205
  3. COUMADIN [Suspect]
     Dosage: ORAL
     Route: 048
  4. DESONIDE [Concomitant]
  5. ATENOLOL [Concomitant]
  6. VICODIN [Concomitant]

REACTIONS (7)
  - COAGULATION TIME PROLONGED [None]
  - DEEP VEIN THROMBOSIS [None]
  - HUMERUS FRACTURE [None]
  - HYPOTENSION [None]
  - INTERNATIONAL NORMALISED RATIO DECREASED [None]
  - PEPTIC ULCER [None]
  - PEPTIC ULCER HAEMORRHAGE [None]
